FAERS Safety Report 25279075 (Version 1)
Quarter: 2025Q2

REPORT INFORMATION
  Report Type: Report from Study
  Country: TH (occurrence: TH)
  Receive Date: 20250507
  Receipt Date: 20250507
  Transmission Date: 20250717
  Serious: Yes (Other)
  Sender: BAYER HEALTHCARE PHARMACEUTICALS INC.
  Company Number: TH-BAYER-2025A059948

PATIENT
  Age: 41 Year
  Sex: Female

DRUGS (2)
  1. CIPROFLOXACIN [Suspect]
     Active Substance: CIPROFLOXACIN
  2. PHENYTOIN [Suspect]
     Active Substance: PHENYTOIN

REACTIONS (1)
  - Drug reaction with eosinophilia and systemic symptoms [None]
